FAERS Safety Report 4333528-3 (Version None)
Quarter: 2004Q1

REPORT INFORMATION
  Report Type: 
  Country: None (occurrence: None)
  Receive Date: 20040325
  Receipt Date: 20031229
  Transmission Date: 20041129
  Serious: No
  Sender: FDA-Public Use
  Company Number: USA031255512

PATIENT
  Age: 71 Year
  Sex: Male

DRUGS (1)
  1. FORTEO [Suspect]
     Dates: start: 20030901, end: 20031229

REACTIONS (4)
  - ARTHRALGIA [None]
  - JOINT STIFFNESS [None]
  - MUSCLE CRAMP [None]
  - PAIN IN EXTREMITY [None]
